FAERS Safety Report 4677009-6 (Version None)
Quarter: 2005Q2

REPORT INFORMATION
  Report Type: 
  Country: None (occurrence: None)
  Receive Date: 20050526
  Receipt Date: 20050519
  Transmission Date: 20051028
  Serious: Yes (Death)
  Sender: FDA-Public Use
  Company Number: R301251-PRT05T-J

PATIENT
  Age: 81 Year
  Sex: Male
  Weight: 53 kg

DRUGS (2)
  1. PARIET (RABEPRAZOLE) (RABEPRAZOLE SODIUM) [Suspect]
     Indication: REFLUX OESOPHAGITIS
     Dosage: 10 MG, 1 IN 1 D, ORAL
     Route: 048
     Dates: start: 20040818
  2. TAKEPRON (LANSOPRAZOLE0 [Concomitant]

REACTIONS (1)
  - CARDIAC FAILURE [None]
